FAERS Safety Report 4501646-2 (Version None)
Quarter: 2004Q4

REPORT INFORMATION
  Report Type: 
  Country: None (occurrence: None)
  Receive Date: 20041109
  Receipt Date: 20041102
  Transmission Date: 20050328
  Serious: Yes (Hospitalization)
  Sender: FDA-Public Use
  Company Number: 200410582BYL

PATIENT
  Age: 53 Year
  Sex: Female

DRUGS (3)
  1. GLUCOBAY [Suspect]
     Dosage: 300 MG, TOTAL DAILY, ORAL
     Route: 048
     Dates: start: 20030612, end: 20040924
  2. LIPITOR [Suspect]
     Dosage: 10 MG, TOTAL DAILY, ORAL
     Route: 048
     Dates: start: 20030612, end: 20040723
  3. MICARDIS [Concomitant]

REACTIONS (3)
  - ALANINE AMINOTRANSFERASE INCREASED [None]
  - ASPARTATE AMINOTRANSFERASE INCREASED [None]
  - GAMMA-GLUTAMYLTRANSFERASE INCREASED [None]
